FAERS Safety Report 14336603 (Version 3)
Quarter: 2018Q1

REPORT INFORMATION
  Report Type: Spontaneous
  Country: PT (occurrence: PT)
  Receive Date: 20171229
  Receipt Date: 20180201
  Transmission Date: 20180509
  Serious: Yes (Other)
  Sender: FDA-Public Use
  Company Number: PT-PFIZER INC-2017550108

PATIENT
  Age: 66 Year
  Sex: Male

DRUGS (2)
  1. ROPIVACAINE HYDROCHLORIDE. [Suspect]
     Active Substance: ROPIVACAINE HYDROCHLORIDE
     Indication: EPIDURAL ANAESTHESIA
     Dosage: 8 ML, UNK, (BOLUS INJECTION)
     Route: 040
  2. ROPIVACAINE HYDROCHLORIDE. [Suspect]
     Active Substance: ROPIVACAINE HYDROCHLORIDE
     Dosage: 4 ML, UNK, (SECOND BOLUS)
     Route: 040

REACTIONS (3)
  - Neurotoxicity [Unknown]
  - Paraparesis [Unknown]
  - Radiculopathy [Unknown]
